FAERS Safety Report 7207575-8 (Version None)
Quarter: 2011Q1

REPORT INFORMATION
  Report Type: 
  Country: None (occurrence: None)
  Receive Date: 20110103
  Receipt Date: 20101222
  Transmission Date: 20110831
  Serious: Yes (Hospitalization, Other)
  Sender: FDA-Public Use
  Company Number: US-PFIZER INC-2010177943

PATIENT
  Sex: Female
  Weight: 74.83 kg

DRUGS (2)
  1. EFFEXOR XR [Suspect]
     Indication: ANXIETY
  2. EFFEXOR XR [Suspect]
     Indication: FEELING ABNORMAL
     Dosage: 37.5 MG, DAILY
     Route: 048
     Dates: start: 20050101, end: 20100801

REACTIONS (12)
  - VISION BLURRED [None]
  - DIZZINESS [None]
  - CHEST PAIN [None]
  - BACK PAIN [None]
  - PANCREATITIS [None]
  - AMNESIA [None]
  - SENSORY DISTURBANCE [None]
  - HYPERTENSION [None]
  - PANCREATIC DISORDER [None]
  - MOTION SICKNESS [None]
  - ELECTROCARDIOGRAM ABNORMAL [None]
  - DIABETES MELLITUS [None]
